FAERS Safety Report 5515651-0 (Version None)
Quarter: 2007Q4

REPORT INFORMATION
  Report Type: 
  Country: None (occurrence: None)
  Receive Date: 20071113
  Receipt Date: 20070726
  Transmission Date: 20080405
  Serious: No
  Sender: FDA-Public Use
  Company Number: A0666519A

PATIENT
  Age: 80 Year
  Sex: Male

DRUGS (7)
  1. COREG [Suspect]
     Dosage: 12.5MG TWICE PER DAY
     Route: 048
     Dates: start: 20070101
  2. LEVODOPA [Concomitant]
  3. LEVOXYL [Concomitant]
  4. FUROSEMIDE [Concomitant]
  5. RISPERDAL [Concomitant]
  6. POTASSIUM CHLORIDE [Concomitant]
  7. ASPIRIN [Concomitant]

REACTIONS (1)
  - HYPOTENSION [None]
